FAERS Safety Report 10355205 (Version 1)
Quarter: 2014Q3

REPORT INFORMATION
  Report Type: Spontaneous
  Country: US (occurrence: None)
  Receive Date: 20140729
  Receipt Date: 20140729
  Transmission Date: 20150326
  Serious: Yes (Other)
  Sender: FDA-Public Use
  Company Number: AUR-APL-2014-07976

PATIENT
  Age: 61 Year
  Sex: Female

DRUGS (2)
  1. ESCITALOPRAM [Suspect]
     Active Substance: ESCITALOPRAM OXALATE
     Indication: FIBROMYALGIA
     Route: 048
     Dates: start: 20131023, end: 20140129
  2. ESCITALOPRAM [Suspect]
     Active Substance: ESCITALOPRAM OXALATE
     Indication: DEPRESSION
     Route: 048
     Dates: start: 20131023, end: 20140129

REACTIONS (5)
  - Hiatus hernia [None]
  - Drug hypersensitivity [None]
  - Off label use [None]
  - Gastritis erosive [None]
  - Nausea [None]

NARRATIVE: CASE EVENT DATE: 20131023
